FAERS Safety Report 11113681 (Version 1)
Quarter: 2015Q2

REPORT INFORMATION
  Report Type: Other
  Country: SE (occurrence: SE)
  Receive Date: 20150514
  Receipt Date: 20150514
  Transmission Date: 20150821
  Serious: Yes (Other)
  Sender: FDA-Public Use
  Company Number: SE-ASTELLAS-2015US016078

PATIENT
  Age: 62 Year
  Sex: Female

DRUGS (2)
  1. BETMIGA [Suspect]
     Active Substance: MIRABEGRON
     Indication: INCONTINENCE
     Dosage: UNK UNK, UNKNOWN FREQ.
     Route: 065
     Dates: start: 20141111, end: 20150402
  2. BETMIGA [Suspect]
     Active Substance: MIRABEGRON
     Indication: HYPERTONIC BLADDER

REACTIONS (4)
  - Hyperhidrosis [Recovered/Resolved]
  - Dry mouth [Recovered/Resolved]
  - Hot flush [Recovered/Resolved]
  - Dry eye [Recovered/Resolved]
